FAERS Safety Report 8578267-8 (Version None)
Quarter: 2012Q3

REPORT INFORMATION
  Report Type: 
  Country: None (occurrence: None)
  Receive Date: 20120726
  Receipt Date: 20120711
  Transmission Date: 20120928
  Serious: Yes (Other)
  Sender: FDA-Public Use
  Company Number: JPI-P-021951

PATIENT
  Age: 63 Year
  Sex: Female
  Weight: 52.6173 kg

DRUGS (21)
  1. ASPIRIN [Concomitant]
  2. MECLIZINE [Concomitant]
  3. OXYCODONE HCL AND ACETAMINOPHEN [Concomitant]
  4. MULTI-VITAMINS [Concomitant]
  5. BEPOTASTINE BESILATE OPHTHALMIC SOLUTION [Concomitant]
  6. FLUTICASONE FUROATE [Concomitant]
  7. DILTIAZEM HCL [Concomitant]
  8. CLOPIDOGREL BISULFATE [Concomitant]
  9. PILOCARPINE [Concomitant]
  10. ALBUTEROL [Concomitant]
  11. CARISOPRODOL [Concomitant]
  12. CALCIUM WITH VITAMIN D [Concomitant]
  13. TIOTROPIUM BROMIDE [Concomitant]
  14. XYREM [Suspect]
     Indication: NARCOLEPSY
     Dosage: ORAL, 8 GM (4 GM, 2 IN 1 D), ORAL
     Route: 048
     Dates: start: 20080501
  15. FOLIC ACID [Concomitant]
  16. OCULAR LUBRICANT [Concomitant]
  17. ATORVASTATIN CALCIUM [Concomitant]
  18. CLONAZEPAM [Concomitant]
  19. VITAMIN D [Concomitant]
  20. HYDROCHLOROTHIAZIDE AND TRIAMTERENE [Concomitant]
  21. FISH OIL [Concomitant]

REACTIONS (23)
  - MYOCARDIAL INFARCTION [None]
  - CONDITION AGGRAVATED [None]
  - DECREASED APPETITE [None]
  - INITIAL INSOMNIA [None]
  - WEIGHT DECREASED [None]
  - DIARRHOEA [None]
  - PULMONARY FIBROSIS [None]
  - ANXIETY [None]
  - LIP DRY [None]
  - NAUSEA [None]
  - SOMNOLENCE [None]
  - DYSPNOEA [None]
  - EYE IRRITATION [None]
  - MIDDLE INSOMNIA [None]
  - RESPIRATORY TRACT CONGESTION [None]
  - FATIGUE [None]
  - ALOPECIA [None]
  - MULTIPLE ALLERGIES [None]
  - NERVOUSNESS [None]
  - AGITATION [None]
  - DRY EYE [None]
  - DIZZINESS [None]
  - ASTHENIA [None]
